FAERS Safety Report 7343005-3 (Version None)
Quarter: 2011Q1

REPORT INFORMATION
  Report Type: 
  Country: None (occurrence: None)
  Receive Date: 20110310
  Receipt Date: 20110228
  Transmission Date: 20110831
  Serious: Yes (Hospitalization)
  Sender: FDA-Public Use
  Company Number: US-JNJFOC-20110300948

PATIENT
  Sex: Female
  Weight: 91.3 kg

DRUGS (8)
  1. DOXORUBICIN HCL [Suspect]
     Route: 042
  2. ATENOLOL [Concomitant]
     Route: 065
  3. LEFLUNOMIDE [Concomitant]
     Route: 065
  4. EVISTA [Concomitant]
     Route: 065
  5. LANSOPRAZOL [Concomitant]
     Route: 065
  6. DIFLUNISAL [Concomitant]
     Route: 065
  7. DOXORUBICIN HCL [Suspect]
     Indication: OVARIAN CANCER
     Route: 042
  8. PREDNISONE TAB [Concomitant]
     Route: 065

REACTIONS (7)
  - DEEP VEIN THROMBOSIS [None]
  - ACUTE RESPIRATORY DISTRESS SYNDROME [None]
  - NAUSEA [None]
  - INTERSTITIAL LUNG DISEASE [None]
  - PULMONARY EMBOLISM [None]
  - VOMITING [None]
  - DIARRHOEA [None]
